FAERS Safety Report 11255712 (Version 1)
Quarter: 2015Q3

REPORT INFORMATION
  Report Type: Spontaneous
  Country: IN (occurrence: IN)
  Receive Date: 20150709
  Receipt Date: 20150709
  Transmission Date: 20151125
  Serious: Yes (Death)
  Sender: FDA-Public Use
  Company Number: IN-ROXANE LABORATORIES, INC.-2015-RO-01102RO

PATIENT
  Age: 14 Year
  Sex: Female
  Weight: 25 kg

DRUGS (5)
  1. THIOPENTONE SODIUM [Concomitant]
     Active Substance: THIOPENTAL SODIUM
     Indication: INDUCTION OF ANAESTHESIA
     Route: 042
  2. FENTANYL. [Concomitant]
     Active Substance: FENTANYL
     Indication: INDUCTION OF ANAESTHESIA
     Route: 042
  3. PROPRANOLOL [Suspect]
     Active Substance: PROPRANOLOL\PROPRANOLOL HYDROCHLORIDE
     Indication: PORTAL VEIN OCCLUSION
     Dosage: 40 MG
     Route: 048
  4. SUCCINYLCHOLINE [Suspect]
     Active Substance: SUCCINYLCHOLINE
     Indication: INDUCTION OF ANAESTHESIA
     Route: 042
  5. ISOFLURANE. [Concomitant]
     Active Substance: ISOFLURANE
     Indication: MAINTENANCE OF ANAESTHESIA
     Route: 065

REACTIONS (2)
  - Hyperkalaemia [Fatal]
  - Cardiac arrest [Fatal]
